FAERS Safety Report 20794771 (Version 1)
Quarter: 2022Q2

REPORT INFORMATION
  Report Type: Spontaneous
  Country: US (occurrence: None)
  Receive Date: 20220505
  Receipt Date: 20220505
  Transmission Date: 20220721
  Serious: No
  Sender: FDA-Public Use
  Company Number: None

PATIENT
  Age: 63 Year
  Sex: Female
  Weight: 60.75 kg

DRUGS (1)
  1. HIZENTRA [Suspect]
     Active Substance: HUMAN IMMUNOGLOBULIN G
     Dosage: FREQUENCY : EVERY OTHER WEEK;?
     Route: 058

REACTIONS (5)
  - Infusion related reaction [None]
  - Infusion site pain [None]
  - Infusion site erythema [None]
  - Infusion site pruritus [None]
  - Infusion site induration [None]

NARRATIVE: CASE EVENT DATE: 20220419
